FAERS Safety Report 18064090 (Version 1)
Quarter: 2020Q3

REPORT INFORMATION
  Report Type: Spontaneous
  Country: US (occurrence: US)
  Receive Date: 20200724
  Receipt Date: 20200724
  Transmission Date: 20201103
  Serious: No
  Sender: FDA-Public Use
  Company Number: US-TEVA-2020-US-1804934

PATIENT
  Sex: Female

DRUGS (1)
  1. CLONIDINE HYDROCHLORIDE. [Suspect]
     Active Substance: CLONIDINE HYDROCHLORIDE
     Route: 065

REACTIONS (7)
  - Tremor [Not Recovered/Not Resolved]
  - Palpitations [Not Recovered/Not Resolved]
  - Blood pressure increased [Not Recovered/Not Resolved]
  - Anxiety [Not Recovered/Not Resolved]
  - Dyspnoea [Not Recovered/Not Resolved]
  - Mental disorder [Not Recovered/Not Resolved]
  - Headache [Not Recovered/Not Resolved]
